FAERS Safety Report 5241291-7 (Version None)
Quarter: 2007Q1

REPORT INFORMATION
  Report Type: 
  Country: None (occurrence: None)
  Receive Date: 20070220
  Receipt Date: 20070205
  Transmission Date: 20070707
  Serious: Yes (Death, Life-Threatening)
  Sender: FDA-Public Use
  Company Number: IT-JNJFOC-20070105228

PATIENT
  Age: 73 Year
  Sex: Female

DRUGS (11)
  1. CAELYX [Suspect]
     Route: 042
  2. CAELYX [Suspect]
     Route: 042
  3. CAELYX [Suspect]
     Route: 042
  4. CAELYX [Suspect]
     Indication: OVARIAN CANCER
     Route: 042
  5. CARBOPLATIN [Suspect]
     Route: 042
  6. CARBOPLATIN [Suspect]
     Route: 042
  7. CARBOPLATIN [Suspect]
     Route: 042
  8. CARBOPLATIN [Suspect]
     Indication: OVARIAN CANCER
     Route: 042
  9. DECADRON [Concomitant]
  10. KYTRIL [Concomitant]
  11. ZANTAC [Concomitant]

REACTIONS (3)
  - LEUKOPENIA [None]
  - NEUTROPENIA [None]
  - SEPTIC SHOCK [None]
